FAERS Safety Report 6152927-0 (Version None)
Quarter: 2009Q2

REPORT INFORMATION
  Report Type: 
  Country: None (occurrence: None)
  Receive Date: 20090409
  Receipt Date: 20090401
  Transmission Date: 20091009
  Serious: Yes (Other)
  Sender: FDA-Public Use
  Company Number: JPI-P-006649

PATIENT
  Age: 49 Year
  Sex: Female

DRUGS (3)
  1. XYREM [Suspect]
     Indication: CATAPLEXY
     Dosage: 4.5 GM (2.5 GM, 2 IN 1 D), ORAL; 9 GM (4.5 GM, 2 IN 1 D), ORAL; 7.5 GM (3.75 GM, 2 IN 1 D), ORAL
     Route: 048
     Dates: start: 20080801, end: 20090301
  2. XYREM [Suspect]
     Indication: CATAPLEXY
     Dosage: 4.5 GM (2.5 GM, 2 IN 1 D), ORAL; 9 GM (4.5 GM, 2 IN 1 D), ORAL; 7.5 GM (3.75 GM, 2 IN 1 D), ORAL
     Route: 048
     Dates: start: 20080725
  3. XYREM [Suspect]
     Indication: CATAPLEXY
     Dosage: 4.5 GM (2.5 GM, 2 IN 1 D), ORAL; 9 GM (4.5 GM, 2 IN 1 D), ORAL; 7.5 GM (3.75 GM, 2 IN 1 D), ORAL
     Route: 048
     Dates: start: 20090301

REACTIONS (1)
  - BREAST CANCER STAGE II [None]
